FAERS Safety Report 4952024-3 (Version None)
Quarter: 2006Q1

REPORT INFORMATION
  Report Type: 
  Country: None (occurrence: None)
  Receive Date: 20060320
  Receipt Date: 20060308
  Transmission Date: 20060701
  Serious: Yes (Life-Threatening)
  Sender: FDA-Public Use
  Company Number: 2006034146

PATIENT
  Age: 73 Year
  Sex: Male
  Weight: 80 kg

DRUGS (3)
  1. SULPERAZON (SULBACTAM, CEFOPERAZONE) [Suspect]
     Indication: INFECTION PROPHYLAXIS
     Dosage: 1 GRAM (1 GRAM, 1 IN 1 D), INTRAVENOUS
     Route: 042
     Dates: start: 20060307, end: 20060307
  2. ADONA (CARBAZOCHROME SODIUM SULFONATE) [Concomitant]
  3. TRANSAMIN (TRANEXAMIC ACID) [Concomitant]

REACTIONS (6)
  - BRADYCARDIA [None]
  - DYSPNOEA [None]
  - LOSS OF CONSCIOUSNESS [None]
  - ORAL DISCHARGE [None]
  - PRURITUS [None]
  - RESUSCITATION [None]
